FAERS Safety Report 9432803 (Version 1)
Quarter: 2013Q3

REPORT INFORMATION
  Report Type: Spontaneous
  Country: DK (occurrence: DK)
  Receive Date: 20130729
  Receipt Date: 20130729
  Transmission Date: 20140515
  Serious: Yes (Hospitalization, Other)
  Sender: FDA-Public Use
  Company Number: UTC-035681

PATIENT
  Age: 10 Year
  Sex: Male

DRUGS (1)
  1. REMODULIN [Suspect]
     Indication: PULMONARY ARTERIAL HYPERTENSION

REACTIONS (8)
  - Right ventricular failure [None]
  - Pulmonary hypertension [None]
  - Pneumonia [None]
  - Sepsis [None]
  - Vomiting [None]
  - Decreased appetite [None]
  - Cyanosis [None]
  - Condition aggravated [None]
